FAERS Safety Report 12565571 (Version 2)
Quarter: 2016Q3

REPORT INFORMATION
  Report Type: Spontaneous
  Country: HR (occurrence: HR)
  Receive Date: 20160718
  Receipt Date: 20160919
  Transmission Date: 20161109
  Serious: Yes (Hospitalization)
  Sender: FDA-Public Use
  Company Number: HR-NOVOPROD-500073

PATIENT
  Age: 55 Year
  Sex: Female

DRUGS (2)
  1. NOVORAPID [Concomitant]
     Active Substance: INSULIN ASPART
     Indication: TYPE 1 DIABETES MELLITUS
     Dosage: 12 IU, TID
     Route: 065
  2. LEVEMIR [Suspect]
     Active Substance: INSULIN DETEMIR
     Indication: TYPE 1 DIABETES MELLITUS
     Dosage: 18 U, SINGLE
     Route: 065
     Dates: end: 20160517

REACTIONS (2)
  - Hypoglycaemic unconsciousness [Recovered/Resolved]
  - Thermal burn [Unknown]

NARRATIVE: CASE EVENT DATE: 20160102
